FAERS Safety Report 8318943-5 (Version None)
Quarter: 2012Q2

REPORT INFORMATION
  Report Type: 
  Country: None (occurrence: None)
  Receive Date: 20120427
  Receipt Date: 20120418
  Transmission Date: 20120825
  Serious: Yes (Other)
  Sender: FDA-Public Use
  Company Number: US-JNJFOC-20120408279

PATIENT
  Sex: Female

DRUGS (9)
  1. ASCORBIC ACID [Concomitant]
     Indication: MEDICAL DIET
     Route: 048
     Dates: start: 20110101
  2. NUCYNTA ER [Suspect]
     Indication: PAIN
     Route: 048
     Dates: start: 20120418
  3. AMITRIPTYLINE HCL [Concomitant]
     Indication: SLEEP DISORDER
     Dosage: 100 MG TABLET/ 25 MG ONCE A DAY
     Route: 048
     Dates: start: 20110101
  4. LOESTRIN 1.5/30 [Concomitant]
     Indication: SWELLING
     Route: 048
     Dates: start: 20110101
  5. VITAMIN D [Concomitant]
     Indication: MEDICAL DIET
     Route: 048
     Dates: start: 20110101
  6. NUCYNTA ER [Suspect]
     Dosage: AS NEEDED
     Route: 048
     Dates: start: 20120411
  7. NUCYNTA ER [Suspect]
     Dosage: AS NEEDED
     Route: 048
     Dates: start: 20111001, end: 20120411
  8. NUCYNTA ER [Suspect]
     Indication: PAIN
     Dosage: TWICE A DAY
     Route: 048
     Dates: start: 20120301
  9. VIMOVO [Concomitant]
     Indication: GASTRIC DISORDER
     Dosage: 500/20MG
     Route: 048
     Dates: start: 20110101

REACTIONS (5)
  - HYPERTENSION [None]
  - DRUG INEFFECTIVE [None]
  - POOR QUALITY SLEEP [None]
  - DIZZINESS [None]
  - TREMOR [None]
